FAERS Safety Report 12285288 (Version 1)
Quarter: 2016Q2

REPORT INFORMATION
  Report Type: Spontaneous
  Country: US (occurrence: None)
  Receive Date: 20160419
  Receipt Date: 20160419
  Transmission Date: 20160815
  Serious: Yes (Hospitalization)
  Sender: FDA-Public Use
  Company Number: None

PATIENT
  Age: 21 Month
  Sex: Male
  Weight: 14.06 kg

DRUGS (3)
  1. CHILDRENS TYLENOL [Suspect]
     Active Substance: ACETAMINOPHEN
     Indication: EAR INFECTION
     Route: 048
     Dates: start: 20160201, end: 20160217
  2. CHILDRENS BENADRYL ALLERGY [Concomitant]
     Active Substance: DIPHENHYDRAMINE HYDROCHLORIDE
  3. CHILDRENS MOTRIN [Concomitant]
     Active Substance: IBUPROFEN

REACTIONS (5)
  - Fluid intake reduced [None]
  - Lethargy [None]
  - Stevens-Johnson syndrome [None]
  - Hypersensitivity [None]
  - Rash generalised [None]

NARRATIVE: CASE EVENT DATE: 20160217
